FAERS Safety Report 8387742-0 (Version None)
Quarter: 2012Q2

REPORT INFORMATION
  Report Type: 
  Country: None (occurrence: None)
  Receive Date: 20120525
  Receipt Date: 20120518
  Transmission Date: 20120825
  Serious: Yes (Hospitalization)
  Sender: FDA-Public Use
  Company Number: US-VIIV HEALTHCARE LIMITED-A0926142A

PATIENT
  Age: 28 Year
  Sex: Female

DRUGS (5)
  1. COMBIVIR [Suspect]
     Indication: ANTIVIRAL TREATMENT
     Dosage: 2TAB PER DAY
     Route: 050
     Dates: start: 20110101, end: 20110418
  2. KALETRA [Suspect]
     Indication: ANTIVIRAL TREATMENT
     Dosage: 4TAB PER DAY
     Route: 048
     Dates: start: 20110101, end: 20110418
  3. REYATAZ [Suspect]
     Indication: ANTIVIRAL TREATMENT
     Dosage: 400MGD PER DAY
     Route: 048
     Dates: start: 20110418
  4. NORVIR [Suspect]
     Indication: ANTIVIRAL TREATMENT
     Dosage: 100MGD PER DAY
     Route: 048
     Dates: start: 20110418
  5. RETROVIR [Suspect]
     Indication: ANTIRETROVIRAL THERAPY
     Route: 042
     Dates: start: 20110911, end: 20110911

REACTIONS (5)
  - NAUSEA [None]
  - VOMITING [None]
  - MATERNAL EXPOSURE DURING PREGNANCY [None]
  - LIVE BIRTH [None]
  - CANDIDIASIS [None]
